FAERS Safety Report 9221481 (Version 1)
Quarter: 2013Q1

REPORT INFORMATION
  Report Type: Spontaneous
  Country: US (occurrence: None)
  Receive Date: 20120831
  Receipt Date: 20120831
  Transmission Date: 20140127
  Serious: No
  Sender: FDA-Public Use
  Company Number: 1000030993

PATIENT
  Sex: Female

DRUGS (2)
  1. DALIRESP [Suspect]
     Dates: start: 201205
  2. CIMETIDINE ( CIMETIDINE) ( CIMETIDINE) [Concomitant]

REACTIONS (5)
  - Diarrhoea [None]
  - Abdominal pain [None]
  - Insomnia [None]
  - Sensation of pressure [None]
  - Weight decreased [None]
